FAERS Safety Report 10635124 (Version 1)
Quarter: 2014Q4

REPORT INFORMATION
  Report Type: Spontaneous
  Country: GB (occurrence: GB)
  Receive Date: 20141205
  Receipt Date: 20141205
  Transmission Date: 20150529
  Serious: Yes (Other)
  Sender: FDA-Public Use
  Company Number: GB-ABBVIE-14P-167-1316553-00

PATIENT
  Age: 30 Year
  Sex: Female
  Weight: 55.3 kg

DRUGS (1)
  1. CLARITHROMYCIN. [Suspect]
     Active Substance: CLARITHROMYCIN
     Indication: LOWER RESPIRATORY TRACT INFECTION
     Dosage: PILL (DAILY DOSE: 1000 MG)
     Route: 048
     Dates: start: 20141117, end: 20141118

REACTIONS (7)
  - Nausea [Recovered/Resolved]
  - Dizziness [Recovered/Resolved]
  - Hyperhidrosis [Recovered/Resolved]
  - Dry mouth [Recovering/Resolving]
  - Chills [Recovering/Resolving]
  - Product taste abnormal [Recovering/Resolving]
  - Hyperventilation [Recovered/Resolved]

NARRATIVE: CASE EVENT DATE: 20141117
